FAERS Safety Report 8484533-7 (Version None)
Quarter: 2012Q3

REPORT INFORMATION
  Report Type: 
  Country: None (occurrence: None)
  Receive Date: 20120703
  Receipt Date: 20120621
  Transmission Date: 20120928
  Serious: Yes (Death, Life-Threatening, Hospitalization, Disabling, Other)
  Sender: FDA-Public Use
  Company Number: US-MYLANLABS-2010AC000514

PATIENT
  Age: 84 Year
  Sex: Female

DRUGS (38)
  1. CARTIA XT [Concomitant]
  2. LASIX [Concomitant]
  3. ALPRAZOLAM [Concomitant]
  4. KLOR-CON [Concomitant]
  5. HUMIBID [Concomitant]
  6. DILTIAZEM HYDROCHOLORIDE [Concomitant]
  7. DYAZIDE [Concomitant]
  8. PREDNISONE [Concomitant]
  9. SUDAFED 12 HOUR [Concomitant]
  10. TESSALON [Concomitant]
  11. DIGOXIN [Suspect]
     Indication: HEART RATE IRREGULAR
     Route: 048
     Dates: start: 20040425, end: 20070829
  12. TRAZODONE HCL [Concomitant]
  13. ACETAMINOPHEN W/ CODEINE [Concomitant]
  14. CLARITIN /00413701/ [Concomitant]
  15. HYDROCHLOROTHIAZDE TAB [Concomitant]
  16. IBUPROFEN [Concomitant]
  17. PRAVACHOL [Concomitant]
  18. COUMADIN [Concomitant]
  19. ALBUTEROL [Concomitant]
  20. ZITHROMAX [Concomitant]
  21. ALTACE [Concomitant]
  22. BENADRYL [Concomitant]
  23. TRIAMCINOLONE [Concomitant]
  24. POTASSIUM CHLORIDE [Concomitant]
  25. TYLENOL W/ CODEINE NO. 3 [Concomitant]
  26. XANAX [Concomitant]
  27. DISALCID [Concomitant]
  28. SIMVASTATIN [Concomitant]
  29. SYNTHROID [Concomitant]
  30. ERY-TAB [Concomitant]
  31. DIAZEPAM [Concomitant]
  32. COMBIVENT [Concomitant]
  33. DIOVAN [Concomitant]
  34. OMNICEF /00497602/ [Concomitant]
  35. CARDIZEM [Concomitant]
  36. EPINEPHRINE [Concomitant]
  37. SONATA [Concomitant]
  38. WARFARIN SODIUM [Concomitant]

REACTIONS (127)
  - HEART RATE INCREASED [None]
  - PAIN [None]
  - RESUSCITATION [None]
  - ARRHYTHMIA SUPRAVENTRICULAR [None]
  - VENTRICULAR EXTRASYSTOLES [None]
  - PULMONARY ARTERIAL HYPERTENSION [None]
  - INSOMNIA [None]
  - LIMB DISCOMFORT [None]
  - NECK PAIN [None]
  - DYSPNOEA EXERTIONAL [None]
  - HYPERGLYCAEMIA [None]
  - CARDIAC FAILURE CONGESTIVE [None]
  - BRONCHOSPASM [None]
  - CEREBRAL SMALL VESSEL ISCHAEMIC DISEASE [None]
  - PULSELESS ELECTRICAL ACTIVITY [None]
  - APALLIC SYNDROME [None]
  - PALPITATIONS [None]
  - JOINT SWELLING [None]
  - DISCOMFORT [None]
  - BRAIN NATRIURETIC PEPTIDE INCREASED [None]
  - CARDIO-RESPIRATORY ARREST [None]
  - HYPOXIC-ISCHAEMIC ENCEPHALOPATHY [None]
  - CARDIAC ENZYMES INCREASED [None]
  - GENERAL PHYSICAL HEALTH DETERIORATION [None]
  - UPPER RESPIRATORY TRACT INFECTION [None]
  - LACERATION [None]
  - BACK PAIN [None]
  - AGITATION [None]
  - OEDEMA PERIPHERAL [None]
  - ANXIETY [None]
  - CERUMEN REMOVAL [None]
  - LABORATORY TEST ABNORMAL [None]
  - DILATATION ATRIAL [None]
  - DRUG LEVEL ABOVE THERAPEUTIC [None]
  - LOSS OF CONSCIOUSNESS [None]
  - VENTRICULAR FIBRILLATION [None]
  - ATRIAL FIBRILLATION [None]
  - POLYP [None]
  - FALL [None]
  - CARDIOVERSION [None]
  - ELECTROCARDIOGRAM [None]
  - ECHOCARDIOGRAM [None]
  - VENTRICULAR HYPOKINESIA [None]
  - PERICARDIAL EFFUSION [None]
  - POLYPECTOMY [None]
  - PANIC ATTACK [None]
  - RHINORRHOEA [None]
  - RASH [None]
  - VENTRICULAR TACHYCARDIA [None]
  - CONTUSION [None]
  - ENCHONDROMA [None]
  - RASH PAPULAR [None]
  - FATIGUE [None]
  - ILL-DEFINED DISORDER [None]
  - ARRHYTHMIA [None]
  - FEELING ABNORMAL [None]
  - ARTHRALGIA [None]
  - HEART RATE IRREGULAR [None]
  - EXTRASYSTOLES [None]
  - MITRAL VALVE CALCIFICATION [None]
  - RIGHT VENTRICULAR SYSTOLIC PRESSURE INCREASED [None]
  - CONVULSION [None]
  - EXTUBATION [None]
  - COUGH [None]
  - OROPHARYNGEAL PAIN [None]
  - LIGAMENT DISORDER [None]
  - SINUS CONGESTION [None]
  - PRODUCTIVE COUGH [None]
  - ORTHOPNOEA [None]
  - PLEURAL EFFUSION [None]
  - SCOLIOSIS [None]
  - RALES [None]
  - PUPILLARY REFLEX IMPAIRED [None]
  - UNRESPONSIVE TO STIMULI [None]
  - RESPIRATORY ARREST [None]
  - MITRAL VALVE INCOMPETENCE [None]
  - AORTIC DILATATION [None]
  - LIMB INJURY [None]
  - SPINAL COLUMN STENOSIS [None]
  - NERVOUSNESS [None]
  - DYSPHONIA [None]
  - HYPOXIA [None]
  - MYOCARDIAL ISCHAEMIA [None]
  - CARDIAC MURMUR [None]
  - HEPATOJUGULAR REFLUX [None]
  - TOXICITY TO VARIOUS AGENTS [None]
  - DEATH [None]
  - TORSADE DE POINTES [None]
  - WALKING AID USER [None]
  - CARDIOACTIVE DRUG LEVEL INCREASED [None]
  - ENDOTRACHEAL INTUBATION [None]
  - OSTEOARTHRITIS [None]
  - RESPIRATORY TRACT CONGESTION [None]
  - DERMATITIS [None]
  - DYSPNOEA [None]
  - X-RAY ABNORMAL [None]
  - INTERVERTEBRAL DISC DEGENERATION [None]
  - CEREBRAL ATROPHY [None]
  - MUSCLE TWITCHING [None]
  - INJURY [None]
  - OXYGEN SATURATION INCREASED [None]
  - TRICUSPID VALVE INCOMPETENCE [None]
  - EJECTION FRACTION DECREASED [None]
  - ARTHROSCOPY [None]
  - EAR PAIN [None]
  - SINUSITIS [None]
  - HYPERTENSION [None]
  - HYPOACUSIS [None]
  - TACHYCARDIA [None]
  - BUNDLE BRANCH BLOCK RIGHT [None]
  - BONE INFARCTION [None]
  - MAMMOGRAM ABNORMAL [None]
  - JUGULAR VEIN DISTENSION [None]
  - CIRCULATORY COLLAPSE [None]
  - PULSE ABSENT [None]
  - BREATH SOUNDS ABSENT [None]
  - AORTIC VALVE INCOMPETENCE [None]
  - MUSCLE STRAIN [None]
  - WHEEZING [None]
  - HYPERLIPIDAEMIA [None]
  - NASOPHARYNGITIS [None]
  - BRONCHITIS [None]
  - HYPOTHYROIDISM [None]
  - TREATMENT NONCOMPLIANCE [None]
  - CHEST PAIN [None]
  - DEPRESSED LEVEL OF CONSCIOUSNESS [None]
  - ELECTROCARDIOGRAM ABNORMAL [None]
